FAERS Safety Report 6589567-5 (Version None)
Quarter: 2010Q1

REPORT INFORMATION
  Report Type: 
  Country: None (occurrence: None)
  Receive Date: 20100212
  Receipt Date: 20100128
  Transmission Date: 20100710
  Serious: Yes (Hospitalization)
  Sender: FDA-Public Use
  Company Number: 2010000345

PATIENT
  Age: 65 Year
  Sex: Male

DRUGS (7)
  1. ERLOTINIB       (ERLOTINIB) (TABLET) [Suspect]
     Indication: HEPATIC NEOPLASM MALIGNANT
     Dosage: (150 MG), ORAL
     Route: 048
     Dates: start: 20100113
  2. SORAFENIB [Suspect]
     Indication: HEPATIC NEOPLASM MALIGNANT
     Dosage: (800 MG) ,ORAL
     Route: 048
     Dates: start: 20100113
  3. ASPIRIN [Concomitant]
  4. NORMITEN (ATENOLOL) [Concomitant]
  5. LANTUS [Concomitant]
  6. ZOLPIDEM [Concomitant]
  7. OCSAAR (LOSARTAN) [Concomitant]

REACTIONS (1)
  - SOMNOLENCE [None]
